FAERS Safety Report 10108479 (Version 1)
Quarter: 2014Q2

REPORT INFORMATION
  Report Type: Spontaneous
  Country: US (occurrence: US)
  Receive Date: 20140425
  Receipt Date: 20140425
  Transmission Date: 20141212
  Serious: Yes (Death)
  Sender: FDA-Public Use
  Company Number: US-ROCHE-1386269

PATIENT
  Age: 58 Year
  Sex: Male

DRUGS (10)
  1. VALIUM [Suspect]
     Indication: NUCLEAR MAGNETIC RESONANCE IMAGING
     Route: 048
     Dates: start: 20130122
  2. AMPYRA [Suspect]
     Indication: MULTIPLE SCLEROSIS
     Route: 048
     Dates: start: 201101, end: 20131115
  3. HYDROCORTISONE ACETATE [Suspect]
     Indication: PRODUCT USED FOR UNKNOWN INDICATION
     Route: 061
  4. NEURONTIN [Suspect]
     Indication: PRODUCT USED FOR UNKNOWN INDICATION
     Route: 048
  5. ASPIRIN [Concomitant]
     Route: 048
  6. LORAZEPAM [Concomitant]
     Dosage: AS NEEDED
     Route: 048
  7. MAXALT [Concomitant]
     Indication: HEADACHE
     Route: 048
  8. VENLAFAXINE ER [Concomitant]
     Route: 048
  9. TEGRETOL [Concomitant]
     Route: 048
  10. BACLOFEN [Concomitant]
     Dosage: AS NEEDED
     Route: 048

REACTIONS (1)
  - Death [Fatal]
